FAERS Safety Report 7186039-4 (Version None)
Quarter: 2010Q4

REPORT INFORMATION
  Report Type: 
  Country: None (occurrence: None)
  Receive Date: 20101222
  Receipt Date: 20100614
  Transmission Date: 20110411
  Serious: No
  Sender: FDA-Public Use
  Company Number: US-AMGEN-KDL418274

PATIENT

DRUGS (10)
  1. ENBREL [Suspect]
     Indication: PRODUCT USED FOR UNKNOWN INDICATION
     Dosage: 50 MG, QWK
     Route: 058
  2. ATENOLOL [Concomitant]
     Dosage: 100 MG, UNK
  3. LOVASTATIN [Concomitant]
     Dosage: 10 MG, UNK
  4. ALENDRONATE SODIUM [Concomitant]
     Dosage: 70 MG, UNK
  5. LEVOTHYROXINE SODIUM [Concomitant]
     Dosage: 100 MG, UNK
  6. FISH OIL [Concomitant]
     Dosage: UNK UNK, UNK
  7. MULTI-VITAMINS [Concomitant]
     Dosage: UNK UNK, UNK
  8. HYOSCYAMINE [Concomitant]
     Dosage: .15 MG, UNK
  9. HERBAL SUPPLEMENT [Concomitant]
     Dosage: UNK UNK, UNK
  10. HERBAL SUPPLEMENT [Concomitant]

REACTIONS (2)
  - PAIN IN EXTREMITY [None]
  - VENOUS INSUFFICIENCY [None]
